FAERS Safety Report 17240795 (Version 2)
Quarter: 2020Q4

REPORT INFORMATION
  Report Type: Other
  Country: US (occurrence: US)
  Receive Date: 20200107
  Receipt Date: 20201008
  Transmission Date: 20210113
  Serious: Yes (Hospitalization, Other)
  Sender: FDA-Public Use
  Company Number: US-ROCHE-2511437

PATIENT
  Age: 43 Year
  Sex: Female
  Weight: 52.66 kg

DRUGS (2)
  1. OCREVUS [Suspect]
     Active Substance: OCRELIZUMAB
     Indication: RELAPSING-REMITTING MULTIPLE SCLEROSIS
     Dosage: 21/DEC/2019
     Route: 042
     Dates: start: 20180618
  2. OCREVUS [Suspect]
     Active Substance: OCRELIZUMAB
     Dosage: PRESCRIBED: INFUSE 300 MG ON DAY 1 AND 15, 600 MG EVERY 6 MONTHS
     Route: 042
     Dates: start: 20180604, end: 20191221

REACTIONS (12)
  - Balance disorder [Not Recovered/Not Resolved]
  - Fall [Unknown]
  - Palpitations [Recovered/Resolved]
  - Pain [Recovered/Resolved]
  - Speech disorder [Not Recovered/Not Resolved]
  - Cystitis [Recovered/Resolved]
  - Fatigue [Recovered/Resolved]
  - Gait disturbance [Not Recovered/Not Resolved]
  - Increased tendency to bruise [Recovered/Resolved]
  - Pneumonia [Recovered/Resolved]
  - Ear discomfort [Recovered/Resolved]
  - Memory impairment [Not Recovered/Not Resolved]

NARRATIVE: CASE EVENT DATE: 201809
